FAERS Safety Report 24824764 (Version 3)
Quarter: 2025Q1

REPORT INFORMATION
  Report Type: Spontaneous
  Country: CN (occurrence: CN)
  Receive Date: 20250109
  Receipt Date: 20250214
  Transmission Date: 20250409
  Serious: Yes (Life-Threatening, Hospitalization)
  Sender: MACLEODS
  Company Number: CN-MACLEODS PHARMA-MAC2024050932

PATIENT

DRUGS (2)
  1. METFORMIN [Suspect]
     Active Substance: METFORMIN HYDROCHLORIDE
     Indication: Product used for unknown indication
     Route: 048
  2. AMLODIPINE [Suspect]
     Active Substance: AMLODIPINE BESYLATE
     Indication: Product used for unknown indication
     Route: 048

REACTIONS (8)
  - Suicide attempt [Recovering/Resolving]
  - Acute kidney injury [Recovering/Resolving]
  - Toxicity to various agents [Unknown]
  - Tachycardia [Recovering/Resolving]
  - Overdose [Recovering/Resolving]
  - Lactic acidosis [Recovering/Resolving]
  - Metabolic acidosis [Recovering/Resolving]
  - Hypotension [Recovering/Resolving]
